FAERS Safety Report 6054591-8 (Version None)
Quarter: 2009Q1

REPORT INFORMATION
  Report Type: 
  Country: None (occurrence: None)
  Receive Date: 20090127
  Receipt Date: 20090119
  Transmission Date: 20090719
  Serious: Yes (Hospitalization)
  Sender: FDA-Public Use
  Company Number: DO-MERCK-0901USA03118

PATIENT
  Age: 19 Year
  Sex: Male

DRUGS (1)
  1. STROMECTOL [Suspect]
     Indication: ONCHOCERCIASIS
     Route: 048
     Dates: start: 20081215, end: 20081215

REACTIONS (4)
  - ABNORMAL BEHAVIOUR [None]
  - ASTHENIA [None]
  - DISORIENTATION [None]
  - HEADACHE [None]
